FAERS Safety Report 7151189-5 (Version None)
Quarter: 2010Q4

REPORT INFORMATION
  Report Type: 
  Country: None (occurrence: None)
  Receive Date: 20101206
  Receipt Date: 20101206
  Transmission Date: 20110411
  Serious: Yes (Hospitalization)
  Sender: FDA-Public Use
  Company Number: None

PATIENT
  Age: 62 Year
  Sex: Male

DRUGS (2)
  1. HYDROCODONE BITARTRATE AND ACETAMINOPHEN [Suspect]
     Dosage: 1 TAB TID PO
     Route: 048
     Dates: start: 20100115, end: 20101202
  2. DIAZEPAM [Suspect]

REACTIONS (4)
  - BRADYCARDIA [None]
  - MENTAL STATUS CHANGES [None]
  - OVERDOSE [None]
  - SEDATION [None]
